FAERS Safety Report 10557831 (Version 1)
Quarter: 2014Q4

REPORT INFORMATION
  Report Type: Spontaneous
  Country: US (occurrence: US)
  Receive Date: 20141031
  Receipt Date: 20141031
  Transmission Date: 20150529
  Serious: No
  Sender: FDA-Public Use
  Company Number: US-TARO-2013P1022001

PATIENT
  Sex: Female
  Weight: 40.82 kg

DRUGS (1)
  1. ALCLOMETASONE DIPROPIONATE CREAM 0.05% [Suspect]
     Active Substance: ALCLOMETASONE DIPROPIONATE
     Indication: ROSACEA
     Dosage: X1
     Route: 061
     Dates: start: 20131210, end: 20131210

REACTIONS (1)
  - Headache [Recovered/Resolved]

NARRATIVE: CASE EVENT DATE: 20131210
